FAERS Safety Report 8749528 (Version 3)
Quarter: 2012Q4

REPORT INFORMATION
  Report Type: Spontaneous
  Country: US (occurrence: None)
  Receive Date: 20120808
  Receipt Date: 20120907
  Transmission Date: 20130627
  Serious: Yes (Hospitalization, Other)
  Sender: FDA-Public Use
  Company Number: JPI-P-023288

PATIENT
  Age: 48 Year
  Sex: Female
  Weight: 83.46 kg

DRUGS (13)
  1. XYREM [Suspect]
     Indication: SLEEP DISORDER
     Dosage: 4.5 GM (2.25 GM, 2 IN 1 D), ORAL; 6 GM (3 GM, 2 IN 1 D), ORAL
     Route: 048
     Dates: start: 20120314
  2. XYREM [Suspect]
     Indication: SLEEP DISORDER
     Dosage: 4.5 GM (2.25 GM, 2 IN 1 D), ORAL; 6 GM (3 GM, 2 IN 1 D), ORAL
     Route: 048
  3. CARVEDILOL [Concomitant]
  4. NAPROXEN SODIUM [Concomitant]
  5. MILNACIPRAN HYDROCHLORIDE [Concomitant]
  6. LORAZEPAM [Concomitant]
  7. MORPHINE SULFATE [Concomitant]
  8. TAPENTADOL HYDROCHLORIDE [Concomitant]
  9. SIMVASTATIN [Concomitant]
  10. FUROSEMIDE [Concomitant]
  11. POTASSIUM [Concomitant]
  12. LEVOTHYROXINE SODIUM [Concomitant]
  13. CYCLOBENZAPRINE HYDROCHLORIDE [Concomitant]

REACTIONS (8)
  - Folliculitis [None]
  - Abscess [None]
  - Binge eating [None]
  - Weight increased [None]
  - Poor quality sleep [None]
  - Back pain [None]
  - Musculoskeletal pain [None]
  - Pain in extremity [None]
